FAERS Safety Report 10442273 (Version 1)
Quarter: 2014Q3

REPORT INFORMATION
  Report Type: Other
  Country: GB (occurrence: GB)
  Receive Date: 20140909
  Receipt Date: 20140909
  Transmission Date: 20150326
  Serious: Yes (Other)
  Sender: FDA-Public Use
  Company Number: GB-MYLAN-2014M1002983

PATIENT

DRUGS (2)
  1. VENLAFAXINE [Suspect]
     Active Substance: VENLAFAXINE HYDROCHLORIDE
     Dosage: 75 MG, UNK
     Route: 065
     Dates: start: 201408
  2. VENLAFAXINE [Suspect]
     Active Substance: VENLAFAXINE HYDROCHLORIDE
     Dosage: 150 MG, UNK
     Route: 065
     Dates: start: 1994, end: 201408

REACTIONS (10)
  - Nightmare [Unknown]
  - Dysstasia [Unknown]
  - Withdrawal syndrome [Unknown]
  - Abnormal dreams [Unknown]
  - Pruritus [Unknown]
  - Insomnia [Unknown]
  - Visual impairment [Unknown]
  - Hyperhidrosis [Unknown]
  - Suicidal ideation [Unknown]
  - Dizziness [Unknown]

NARRATIVE: CASE EVENT DATE: 2014
